FAERS Safety Report 5423148-1 (Version None)
Quarter: 2007Q4

REPORT INFORMATION
  Report Type: 
  Country: None (occurrence: None)
  Receive Date: 20070821
  Receipt Date: 20070813
  Transmission Date: 20080405
  Serious: Yes (Other)
  Sender: FDA-Public Use
  Company Number: 107#03#2007-03026

PATIENT
  Sex: Female

DRUGS (7)
  1. MIRTAZAPINE [Suspect]
     Indication: DEPRESSION
     Dosage: 30 MG
     Route: 048
     Dates: start: 20070704, end: 20070717
  2. ATENOLOL [Concomitant]
  3. ATORVASTATIN CALCIUM [Concomitant]
  4. DIAZEPAM [Concomitant]
  5. FRUSEMIDE (FRUSEMIDE) [Concomitant]
  6. LANSOPRAZOLE [Concomitant]
  7. RISPERIDONE [Concomitant]

REACTIONS (2)
  - NEUTROPENIA [None]
  - ORAL INFECTION [None]
